FAERS Safety Report 20681444 (Version 1)
Quarter: 2022Q2

REPORT INFORMATION
  Report Type: Report from Study
  Country: BR (occurrence: BR)
  Receive Date: 20220406
  Receipt Date: 20220406
  Transmission Date: 20220720
  Serious: Yes (Hospitalization, Other)
  Sender: FDA-Public Use
  Company Number: BR-SA-SAC20211222000268

PATIENT
  Age: 5 Year
  Sex: Female
  Weight: 16 kg

DRUGS (42)
  1. ISATUXIMAB [Suspect]
     Active Substance: ISATUXIMAB
     Indication: B-cell type acute leukaemia
     Dosage: 20 MG/KG, QW
     Route: 042
  2. ISATUXIMAB [Suspect]
     Active Substance: ISATUXIMAB
     Dosage: 20 MG/KG, QW
     Route: 042
     Dates: start: 20211210, end: 20211210
  3. DEXAMETHASONE [Suspect]
     Active Substance: DEXAMETHASONE
     Indication: B-cell type acute leukaemia
     Dosage: UNK
  4. DEXAMETHASONE [Suspect]
     Active Substance: DEXAMETHASONE
     Dosage: 10 MG/M2, DAYS -3, -2, -1 BEFORE ISATUXIMAB ADMINISTRATION, 1, 8, 15 TO 19, 22, AND 29 TO 33 FOR THE
  5. MITOXANTRONE [Suspect]
     Active Substance: MITOXANTRONE HYDROCHLORIDE
     Indication: B-cell type acute leukaemia
     Dosage: 10 MG/M2, DAYS 8 AND 9 OF INDUCATION PERIOD
     Route: 042
     Dates: start: 20211217, end: 20211217
  6. MITOXANTRONE [Suspect]
     Active Substance: MITOXANTRONE HYDROCHLORIDE
     Dosage: 10 MG/M2, DAYS 8 AND 9 OF INDUCATION PERIOD
     Route: 042
  7. DOXORUBICIN [Suspect]
     Active Substance: DOXORUBICIN
     Indication: B-cell type acute leukaemia
     Dosage: 25 MG/M2, DAYS 10, 17, 24, AND 31 OF THE INDUCTION PERIOD
     Route: 042
  8. DOXORUBICIN [Suspect]
     Active Substance: DOXORUBICIN
     Dosage: 25 MG/M2, DAYS 10, 17, 24, AND 31 OF THE INDUCTION PERIOD
     Route: 042
  9. VINCRISTINE SULFATE [Suspect]
     Active Substance: VINCRISTINE SULFATE
     Indication: B-cell type acute leukaemia
     Dosage: 1.5 MG/M2, DAYS 10, 17, 24, AND 31 DURING THE INDUCTION PERIOD
     Route: 042
     Dates: start: 20211220, end: 20211220
  10. VINCRISTINE SULFATE [Suspect]
     Active Substance: VINCRISTINE SULFATE
     Dosage: 1.5 MG/M2, DAYS 10, 17, 24, AND 31 DURING THE INDUCTION PERIOD
     Route: 042
  11. METHOTREXATE [Suspect]
     Active Substance: METHOTREXATE
     Indication: B-cell type acute leukaemia
     Dosage: 1000 MG/M2, DAY 43 DURING THE CONSOLIDATION PERIOD
     Route: 042
  12. METHOTREXATE [Suspect]
     Active Substance: METHOTREXATE
     Dosage: 1000 MG/M2, DAY 43 DURING THE CONSOLIDATION PERIOD
     Route: 042
  13. ASPARAGINASE [Suspect]
     Active Substance: ASPARAGINASE
     Indication: B-cell type acute leukaemia
     Dosage: UNK
  14. ASPARAGINASE [Suspect]
     Active Substance: ASPARAGINASE
     Dosage: 1000 IU/M? DAYS 10 AND 24 DURING THE INDUCTION PERIOD, DAY 44 DURING CONSOLIDATION PERIOD
  15. CYCLOPHOSPHAMIDE [Suspect]
     Active Substance: CYCLOPHOSPHAMIDE
     Indication: B-cell type acute leukaemia
     Dosage: 440 MG/M2, DAYS 50 TO 54 INCLUSIVE, DURING THE CONSOLIDATION PERIOD
     Route: 042
  16. CYCLOPHOSPHAMIDE [Suspect]
     Active Substance: CYCLOPHOSPHAMIDE
     Dosage: 440 MG/M2, DAYS 50 TO 54 INCLUSIVE, DURING THE CONSOLIDATION PERIOD
     Route: 042
  17. ETOPOSIDE [Suspect]
     Active Substance: ETOPOSIDE
     Indication: B-cell type acute leukaemia
     Dosage: 100 MG/M2, DAYS 50 TO 54 INCLUSIVE, DURING THE CONSOLIDATION PERIOD
     Route: 042
  18. ETOPOSIDE [Suspect]
     Active Substance: ETOPOSIDE
     Dosage: 100 MG/M2, DAYS 50 TO 54 INCLUSIVE, DURING THE CONSOLIDATION PERIOD
     Route: 042
  19. BACTRIM [Concomitant]
     Active Substance: SULFAMETHOXAZOLE\TRIMETHOPRIM
     Indication: Prophylaxis
     Dosage: UNK
     Route: 048
     Dates: start: 202005
  20. TYLENOL [Concomitant]
     Active Substance: ACETAMINOPHEN
     Indication: Prophylaxis
     Dosage: UNK
     Route: 048
     Dates: start: 20211210, end: 20211210
  21. TYLENOL [Concomitant]
     Active Substance: ACETAMINOPHEN
     Dosage: UNK
     Route: 048
     Dates: start: 20211217, end: 20211217
  22. TYLENOL [Concomitant]
     Active Substance: ACETAMINOPHEN
     Dosage: UNK
     Route: 048
     Dates: start: 20211224, end: 20211224
  23. DIPHENHYDRAMINE [Concomitant]
     Active Substance: DIPHENHYDRAMINE
     Indication: Prophylaxis
     Dosage: UNK
     Route: 042
     Dates: start: 20211222, end: 20211222
  24. POTASSIUM CHLORIDE [Concomitant]
     Active Substance: POTASSIUM CHLORIDE
     Indication: Prophylaxis
     Dosage: UNK
     Route: 042
     Dates: start: 20211219, end: 20211224
  25. DEXAMETHASONE [Concomitant]
     Active Substance: DEXAMETHASONE
     Indication: Prophylaxis
     Dosage: UNK
     Route: 042
     Dates: start: 20211206, end: 20211206
  26. DEXAMETHASONE [Concomitant]
     Active Substance: DEXAMETHASONE
     Dosage: UNK
     Route: 042
     Dates: start: 20211210, end: 20211210
  27. CALCIUM GLUCONATE [Concomitant]
     Active Substance: CALCIUM GLUCONATE
     Indication: Prophylaxis
     Dosage: UNK
     Route: 042
     Dates: start: 20211219, end: 20211224
  28. LACTULOSE [Concomitant]
     Active Substance: LACTULOSE
     Dosage: UNK
     Route: 048
     Dates: start: 20211220, end: 20211220
  29. LACTULOSE [Concomitant]
     Active Substance: LACTULOSE
     Dosage: UNK
     Route: 048
     Dates: start: 20211221, end: 20211224
  30. PLATELETS [Concomitant]
     Active Substance: HUMAN PLATELET, ALLOGENIC
     Dosage: UNK
     Route: 042
     Dates: start: 20211224, end: 20211224
  31. METAMIZOL [Concomitant]
     Active Substance: METAMIZOLE SODIUM
     Dosage: UNK
     Route: 042
     Dates: start: 20211216, end: 20211223
  32. ACETAMINOPHEN [Concomitant]
     Active Substance: ACETAMINOPHEN
     Indication: Prophylaxis
     Dosage: UNK
     Route: 048
     Dates: start: 20211219, end: 20211219
  33. ACETAMINOPHEN [Concomitant]
     Active Substance: ACETAMINOPHEN
     Dosage: UNK
     Route: 048
     Dates: start: 20211221, end: 20211221
  34. NUTREN JUNIOR [Concomitant]
     Indication: Prophylaxis
     Dosage: UNK
     Route: 048
     Dates: start: 20211210, end: 20211214
  35. NUTREN JUNIOR [Concomitant]
     Dosage: UNK
     Route: 048
     Dates: start: 20211216, end: 20211216
  36. NUTREN JUNIOR [Concomitant]
     Dosage: UNK
     Route: 048
     Dates: start: 20211218, end: 20211222
  37. BROMOPRIDE [Concomitant]
     Active Substance: BROMOPRIDE
     Dosage: UNK
     Route: 042
     Dates: start: 20211217, end: 20211219
  38. CEFEPIME [Concomitant]
     Active Substance: CEFEPIME HYDROCHLORIDE
     Dosage: UNK
     Route: 042
     Dates: start: 20211219, end: 20211224
  39. METRONIDAZOLE [Concomitant]
     Active Substance: METRONIDAZOLE
     Dosage: UNK
     Route: 042
     Dates: start: 20211219, end: 20211222
  40. SODIUM CHLORIDE [Concomitant]
     Active Substance: SODIUM CHLORIDE
     Indication: Prophylaxis
     Dosage: UNK
     Route: 042
     Dates: start: 20211219, end: 20211219
  41. SODIUM CHLORIDE [Concomitant]
     Active Substance: SODIUM CHLORIDE
     Dosage: UNK
     Route: 042
     Dates: start: 20211219, end: 20211224
  42. DEXTROSE [Concomitant]
     Active Substance: DEXTROSE
     Indication: Prophylaxis
     Dosage: UNK
     Route: 042
     Dates: start: 20211219, end: 20211224

REACTIONS (3)
  - Febrile neutropenia [Recovered/Resolved]
  - Febrile neutropenia [Not Recovered/Not Resolved]
  - Seizure [Recovered/Resolved]

NARRATIVE: CASE EVENT DATE: 20211219
